FAERS Safety Report 13099174 (Version 1)
Quarter: 2017Q1

REPORT INFORMATION
  Report Type: Report from Study
  Country: US (occurrence: US)
  Receive Date: 20170109
  Receipt Date: 20170109
  Transmission Date: 20170428
  Serious: No
  Sender: FDA-Public Use
  Company Number: US-JNJFOC-20170105116

PATIENT
  Age: 37 Year
  Sex: Female
  Weight: 68.04 kg

DRUGS (2)
  1. STELARA [Suspect]
     Active Substance: USTEKINUMAB
     Indication: CROHN^S DISEASE
     Dosage: FIRST MAINTENANCE INJECTION
     Route: 042
     Dates: start: 20170105
  2. STELARA [Suspect]
     Active Substance: USTEKINUMAB
     Indication: CROHN^S DISEASE
     Dosage: IV INDUCTION DOSE
     Route: 042
     Dates: start: 20161101

REACTIONS (2)
  - Ingrown hair [Not Recovered/Not Resolved]
  - Nail infection [Not Recovered/Not Resolved]

NARRATIVE: CASE EVENT DATE: 201612
